FAERS Safety Report 5965439-1 (Version None)
Quarter: 2008Q4

REPORT INFORMATION
  Report Type: 
  Country: None (occurrence: None)
  Receive Date: 20081125
  Receipt Date: 20081119
  Transmission Date: 20090506
  Serious: Yes (Hospitalization)
  Sender: FDA-Public Use
  Company Number: GB-JNJFOC-20081105114

PATIENT
  Age: 84 Year
  Sex: Female
  Weight: 44 kg

DRUGS (8)
  1. IBUPROFEN TABLETS [Suspect]
     Route: 048
  2. IBUPROFEN TABLETS [Suspect]
     Indication: BACK PAIN
     Route: 048
  3. PARACETAMOL [Concomitant]
     Indication: ANALGESIA
     Route: 048
  4. DICLOFENAC 1.16% [Concomitant]
     Indication: ANALGESIA
     Route: 061
  5. DOSULEPIN [Concomitant]
     Indication: DEPRESSION
     Route: 048
  6. FERROUS FUMARATE [Concomitant]
     Indication: IRON DEFICIENCY
     Route: 048
  7. LANSOPRAZOLE [Concomitant]
     Route: 048
  8. ALENDRONIC ACID [Concomitant]
     Indication: BONE DENSITY DECREASED
     Route: 048

REACTIONS (1)
  - GASTRITIS [None]
